FAERS Safety Report 11191232 (Version 2)
Quarter: 2015Q3

REPORT INFORMATION
  Report Type: Spontaneous
  Country: GB (occurrence: GB)
  Receive Date: 20150615
  Receipt Date: 20150714
  Transmission Date: 20151125
  Serious: Yes (Other)
  Sender: FDA-Public Use
  Company Number: GB-AMGEN-GBRSP2015042100

PATIENT
  Age: 30 Year
  Sex: Male
  Weight: 75 kg

DRUGS (4)
  1. PRED FORTE [Concomitant]
     Active Substance: PREDNISOLONE ACETATE
     Indication: IRIDOCYCLITIS
     Dosage: 1 DF, 3X/DAY (TDS)
     Route: 031
     Dates: start: 201409
  2. FOLIC ACID. [Concomitant]
     Active Substance: FOLIC ACID
     Dosage: 5 MG, WEEKLY (5 MG/W) (WITH METHOTREXATE)
     Route: 048
     Dates: start: 2001
  3. METHOTREXATE [Concomitant]
     Active Substance: METHOTREXATE
     Indication: ANKYLOSING SPONDYLITIS
     Dosage: 15 MG, WEEKLY
     Route: 048
     Dates: start: 2001
  4. ENBREL [Suspect]
     Active Substance: ETANERCEPT
     Indication: ANKYLOSING SPONDYLITIS
     Dosage: 50 MG, WEEKLY
     Route: 058
     Dates: start: 201409

REACTIONS (2)
  - Uveitis [Not Recovered/Not Resolved]
  - Disease recurrence [Not Recovered/Not Resolved]

NARRATIVE: CASE EVENT DATE: 20141220
